FAERS Safety Report 8954678 (Version 1)
Quarter: 2012Q4

REPORT INFORMATION
  Report Type: Spontaneous
  Country: US (occurrence: None)
  Receive Date: 20121205
  Receipt Date: 20121205
  Transmission Date: 20130627
  Serious: Yes (Other)
  Sender: FDA-Public Use
  Company Number: None

PATIENT
  Weight: 99.79 kg

DRUGS (1)
  1. WARFARIN [Suspect]
     Indication: THROMBOSIS LEG
     Route: 048
     Dates: start: 20050105, end: 20091115

REACTIONS (4)
  - Rash generalised [None]
  - Pain in extremity [None]
  - Skin exfoliation [None]
  - Nerve injury [None]
